FAERS Safety Report 4680699-5 (Version None)
Quarter: 2005Q2

REPORT INFORMATION
  Report Type: 
  Country: None (occurrence: None)
  Receive Date: 20050603
  Receipt Date: 20050525
  Transmission Date: 20051028
  Serious: Yes (Other)
  Sender: FDA-Public Use
  Company Number: 2005UW08136

PATIENT
  Age: 81 Year
  Sex: Male
  Weight: 96.2 kg

DRUGS (4)
  1. CASODEX [Suspect]
     Indication: PROSTATE CANCER
     Route: 048
  2. ZOCOR [Concomitant]
  3. ASPIRIN [Concomitant]
  4. VITAMINS [Concomitant]

REACTIONS (3)
  - BLINDNESS UNILATERAL [None]
  - EYE HAEMORRHAGE [None]
  - MACULAR DEGENERATION [None]
